FAERS Safety Report 9053568 (Version 1)
Quarter: 2013Q1

REPORT INFORMATION
  Report Type: Spontaneous
  Country: US (occurrence: None)
  Receive Date: 20130201
  Receipt Date: 20130201
  Transmission Date: 20140127
  Serious: Yes (Hospitalization)
  Sender: FDA-Public Use
  Company Number: None

PATIENT
  Age: 29 Year
  Sex: Male
  Weight: 63.6 kg

DRUGS (2)
  1. ALEVE [Suspect]
     Indication: TOOTHACHE
     Dosage: OFF AND ON CHRONIC USE
  2. GOODYS [Suspect]
     Dosage: OFF AND ON CHRONIC USE

REACTIONS (4)
  - Abdominal pain [None]
  - Vomiting [None]
  - Nausea [None]
  - Gastritis haemorrhagic [None]
